FAERS Safety Report 9727188 (Version 1)
Quarter: 2013Q4

REPORT INFORMATION
  Report Type: Spontaneous
  Country: US (occurrence: US)
  Receive Date: 20131203
  Receipt Date: 20131203
  Transmission Date: 20140711
  Serious: No
  Sender: FDA-Public Use
  Company Number: US-BRISTOL-MYERS SQUIBB COMPANY-19556943

PATIENT
  Sex: Male

DRUGS (1)
  1. KOMBIGLYZE XR [Suspect]
     Indication: TYPE 2 DIABETES MELLITUS
     Dosage: KOMBIGLYZE 5/1000MG TABLETS
     Dates: start: 20130402, end: 20130515

REACTIONS (1)
  - Drug ineffective [Unknown]
